FAERS Safety Report 5712200-9 (Version None)
Quarter: 2008Q2

REPORT INFORMATION
  Report Type: 
  Country: None (occurrence: None)
  Receive Date: 20080421
  Receipt Date: 20080421
  Transmission Date: 20081010
  Serious: No
  Sender: FDA-Public Use
  Company Number: None

PATIENT
  Sex: Female
  Weight: 130.6359 kg

DRUGS (2)
  1. FLUTICASONE PROPIONATE [Suspect]
     Indication: RHINITIS ALLERGIC
     Dosage: TWICE SP/NOSTRIL QDAY DAILY EA NOSTRIL
     Route: 045
  2. RHINOCORT AQUA 32MCG/SP [Suspect]
     Indication: RHINITIS ALLERGIC
     Dosage: TWICE SP/NOSTRIL QDAY DAILY EA NOSTRIL
     Route: 045
     Dates: start: 20080324, end: 20080416

REACTIONS (2)
  - DRUG INEFFECTIVE [None]
  - THERAPEUTIC RESPONSE UNEXPECTED WITH DRUG SUBSTITUTION [None]
